FAERS Safety Report 7142760-5 (Version None)
Quarter: 2010Q4

REPORT INFORMATION
  Report Type: 
  Country: None (occurrence: None)
  Receive Date: 20101207
  Receipt Date: 20101126
  Transmission Date: 20110411
  Serious: Yes (Other)
  Sender: FDA-Public Use
  Company Number: JP-AMGEN-JPNCT2010007477

PATIENT

DRUGS (11)
  1. PANITUMUMAB [Suspect]
     Indication: COLORECTAL CANCER
     Dosage: 6 MG/KG, Q2WK
     Route: 042
     Dates: start: 20100811, end: 20100811
  2. OXALIPLATIN [Suspect]
     Indication: COLORECTAL CANCER
     Route: 041
     Dates: start: 20100811, end: 20100813
  3. FLUOROURACIL [Concomitant]
     Indication: COLORECTAL CANCER
     Dosage: UNK MG, UNK
     Route: 042
     Dates: start: 20100811, end: 20100813
  4. FLUOROURACIL [Concomitant]
     Route: 041
     Dates: start: 20100811, end: 20100813
  5. CALCIUM LEVOFOLINATE [Concomitant]
     Indication: COLORECTAL CANCER
     Route: 041
     Dates: start: 20100811, end: 20100813
  6. CORTICOSTEROIDS [Concomitant]
     Indication: PROPHYLAXIS
     Route: 065
  7. KYTRIL [Concomitant]
     Route: 048
  8. GRANISETRON HCL [Concomitant]
     Route: 041
  9. NORVASC [Concomitant]
     Route: 048
  10. FLUVASTATIN [Concomitant]
     Route: 048
  11. CELECTOL [Concomitant]
     Route: 048

REACTIONS (3)
  - DYSGEUSIA [None]
  - PHARYNGITIS [None]
  - STOMATITIS [None]
